FAERS Safety Report 15285969 (Version 1)
Quarter: 2018Q3

REPORT INFORMATION
  Report Type: Spontaneous
  Country: US (occurrence: US)
  Receive Date: 20180816
  Receipt Date: 20180816
  Transmission Date: 20181010
  Serious: Yes (Disabling, Other)
  Sender: FDA-Public Use
  Company Number: US-GE HEALTHCARE LIFE SCIENCES-2018CSU003099

PATIENT
  Sex: Female

DRUGS (6)
  1. OMNISCAN [Suspect]
     Active Substance: GADODIAMIDE
     Indication: PRODUCT USED FOR UNKNOWN INDICATION
     Dosage: UNK, SINGLE
     Route: 042
     Dates: start: 20130827, end: 20130827
  2. MULTIHANCE [Suspect]
     Active Substance: GADOBENATE DIMEGLUMINE
     Dosage: UNK UNK, SINGLE
     Route: 042
     Dates: start: 20140917, end: 20140917
  3. MULTIHANCE [Suspect]
     Active Substance: GADOBENATE DIMEGLUMINE
     Dosage: UNK UNK, SINGLE
     Route: 042
     Dates: start: 20160812, end: 20160812
  4. MULTIHANCE [Suspect]
     Active Substance: GADOBENATE DIMEGLUMINE
     Indication: PRODUCT USED FOR UNKNOWN INDICATION
     Dosage: UNK UNK, SINGLE
     Route: 042
     Dates: start: 20100310, end: 20100310
  5. OMNISCAN [Suspect]
     Active Substance: GADODIAMIDE
     Dosage: UNK, SINGLE
     Route: 042
     Dates: start: 20130829, end: 20130829
  6. MULTIHANCE [Suspect]
     Active Substance: GADOBENATE DIMEGLUMINE
     Dosage: UNK UNK, SINGLE
     Route: 042
     Dates: start: 20140904, end: 20140904

REACTIONS (7)
  - Injury [Unknown]
  - Fibrosis [Unknown]
  - Emotional distress [Not Recovered/Not Resolved]
  - Pain [Unknown]
  - Skin fibrosis [Unknown]
  - Gadolinium deposition disease [Unknown]
  - Anxiety [Not Recovered/Not Resolved]
